FAERS Safety Report 5572974-7 (Version None)
Quarter: 2007Q4

REPORT INFORMATION
  Report Type: 
  Country: None (occurrence: None)
  Receive Date: 20071224
  Receipt Date: 20071221
  Transmission Date: 20080405
  Serious: Yes (Other)
  Sender: FDA-Public Use
  Company Number: FR-BRISTOL-MYERS SQUIBB COMPANY-14022354

PATIENT
  Age: 84 Year
  Sex: Female

DRUGS (1)
  1. HYDREA [Suspect]
     Indication: THROMBOCYTOPENIA
     Dosage: DRUG WAS TAKEN TWICE OR THRICE WEEKLY FOR MORE THAN ONE YEARS

REACTIONS (6)
  - ANAEMIA [None]
  - FALL [None]
  - HYPERTENSION [None]
  - PAIN [None]
  - RIB FRACTURE [None]
  - TREMOR [None]
